FAERS Safety Report 18675806 (Version 1)
Quarter: 2020Q4

REPORT INFORMATION
  Report Type: Report from Study
  Country: None (occurrence: DE)
  Receive Date: 20201229
  Receipt Date: 20201229
  Transmission Date: 20210114
  Serious: Yes (Death, Hospitalization, Other)
  Sender: FDA-Public Use
  Company Number: DE-ABBVIE-20K-062-3709264-00

PATIENT
  Age: 39 Year
  Sex: Female

DRUGS (2)
  1. HUMIRA [Suspect]
     Active Substance: ADALIMUMAB
     Indication: PSORIASIS
     Route: 030
     Dates: start: 20151118, end: 201610
  2. PREDNISOLON [Concomitant]
     Active Substance: PREDNISOLONE
     Indication: PRODUCT USED FOR UNKNOWN INDICATION

REACTIONS (19)
  - Fatigue [Unknown]
  - Skin erosion [Unknown]
  - General physical health deterioration [Unknown]
  - Erythema [Unknown]
  - Influenza [Unknown]
  - Pain in extremity [Unknown]
  - Bacterial infection [Fatal]
  - Feeling hot [Unknown]
  - Nutritional condition abnormal [Unknown]
  - Chills [Unknown]
  - Bullous erysipelas [Unknown]
  - Acute kidney injury [Unknown]
  - Oropharyngeal pain [Unknown]
  - Streptococcal sepsis [Unknown]
  - Incorrect route of product administration [Unknown]
  - Antiphospholipid antibodies [Unknown]
  - Skin discolouration [Unknown]
  - Peripheral swelling [Unknown]
  - Erythema [Unknown]

NARRATIVE: CASE EVENT DATE: 20151118
